FAERS Safety Report 25487022 (Version 1)
Quarter: 2025Q2

REPORT INFORMATION
  Report Type: Spontaneous
  Country: JP (occurrence: JP)
  Receive Date: 20250627
  Receipt Date: 20250627
  Transmission Date: 20250717
  Serious: Yes (Hospitalization)
  Sender: GLAXOSMITHKLINE
  Company Number: JP-GSKNCCC-Case-02367631_AE-98928

PATIENT
  Sex: Female

DRUGS (2)
  1. LAMICTAL [Suspect]
     Active Substance: LAMOTRIGINE
     Indication: Epilepsy
     Dosage: 32 MG, BID
  2. VALPROATE [Concomitant]
     Active Substance: VALPROIC ACID

REACTIONS (2)
  - Hospitalisation [Unknown]
  - Nephropathy [Unknown]
